FAERS Safety Report 23193207 (Version 1)
Quarter: 2023Q4

REPORT INFORMATION
  Report Type: Spontaneous
  Country: US (occurrence: US)
  Receive Date: 20231116
  Receipt Date: 20231116
  Transmission Date: 20240109
  Serious: Yes (Other)
  Sender: FDA-Public Use
  Company Number: US-AMNEAL PHARMACEUTICALS-2023-AMRX-03921

PATIENT

DRUGS (2)
  1. RYTARY [Suspect]
     Active Substance: CARBIDOPA\LEVODOPA
     Indication: Product used for unknown indication
     Dosage: 7 CAPSULES, QD (2 CAPSULE OF 195 MG, 3 TIMES A DAY AND 1 CAPSULE OF 195 MG BEFORE BED)
     Route: 065
  2. RYTARY [Suspect]
     Active Substance: CARBIDOPA\LEVODOPA
     Dosage: 7 CAPSULES, QD (2 CAPSULE OF 145 MG, 3 TIMES A DAY AND 1 CAPSULE OF 145 MG BEFORE BED)
     Route: 065

REACTIONS (3)
  - Choking [Recovered/Resolved]
  - Muscle tightness [Recovered/Resolved]
  - Dyskinesia [Recovered/Resolved]
